FAERS Safety Report 14141712 (Version 1)
Quarter: 2017Q4

REPORT INFORMATION
  Report Type: Spontaneous
  Country: TR (occurrence: TR)
  Receive Date: 20171030
  Receipt Date: 20171030
  Transmission Date: 20180321
  Serious: Yes (Other)
  Sender: FDA-Public Use
  Company Number: TR-GLAXOSMITHKLINE-TR2017GSK165340

PATIENT
  Age: 63 Year
  Sex: Female

DRUGS (1)
  1. ACITRETIN. [Suspect]
     Active Substance: ACITRETIN
     Indication: PSORIASIS
     Dosage: 0.46 MG/KG, UNK
     Route: 048

REACTIONS (3)
  - Alopecia [Unknown]
  - Goitre [Recovered/Resolved]
  - Hyperthyroidism [Recovered/Resolved]
